FAERS Safety Report 9415595 (Version 1)
Quarter: 2013Q3

REPORT INFORMATION
  Report Type: Report from Study
  Country: DE (occurrence: DE)
  Receive Date: 20130723
  Receipt Date: 20130723
  Transmission Date: 20140515
  Serious: Yes (Other)
  Sender: FDA-Public Use
  Company Number: PHHO2013DE009531

PATIENT
  Sex: Male

DRUGS (3)
  1. FTY [Suspect]
     Indication: MULTIPLE SCLEROSIS
     Dosage: 0.5 MG, QD
     Route: 048
     Dates: start: 200705
  2. FAMPYRA [Suspect]
     Indication: GAIT DISTURBANCE
     Dosage: 2 DF, QD
     Dates: start: 201212
  3. CIRCADIN [Concomitant]
     Indication: SLEEP DISORDER
     Dates: start: 20121126

REACTIONS (1)
  - Atrial fibrillation [Recovered/Resolved]
